FAERS Safety Report 9897899 (Version 1)
Quarter: 2014Q1

REPORT INFORMATION
  Report Type: Spontaneous
  Country: US (occurrence: US)
  Receive Date: 20140214
  Receipt Date: 20140214
  Transmission Date: 20141002
  Serious: No
  Sender: FDA-Public Use
  Company Number: US-PFIZER INC-2014041480

PATIENT
  Age: 58 Year
  Sex: Female
  Weight: 105.22 kg

DRUGS (2)
  1. NEURONTIN [Suspect]
     Indication: MUSCLE SPASMS
     Dosage: 300 MG, 2X/DAY
  2. NEURONTIN [Suspect]
     Indication: PAIN
     Dosage: 300 MG, DAILY

REACTIONS (3)
  - Hypersensitivity [Unknown]
  - Nasopharyngitis [Unknown]
  - Sinusitis [Unknown]
